FAERS Safety Report 8250348-8 (Version None)
Quarter: 2012Q2

REPORT INFORMATION
  Report Type: 
  Country: None (occurrence: None)
  Receive Date: 20120402
  Receipt Date: 20120323
  Transmission Date: 20120825
  Serious: Yes (Hospitalization)
  Sender: FDA-Public Use
  Company Number: BR-ASTRAZENECA-2012SE19823

PATIENT
  Age: 58 Year
  Sex: Male
  Weight: 80 kg

DRUGS (1)
  1. ATACAND HCT [Suspect]
     Indication: HYPERTENSION
     Dosage: 16/12,5 MG OD
     Route: 048
     Dates: start: 20110101

REACTIONS (2)
  - ANAEMIA [None]
  - GASTRIC HAEMORRHAGE [None]
